FAERS Safety Report 8209184-0 (Version None)
Quarter: 2012Q1

REPORT INFORMATION
  Report Type: 
  Country: None (occurrence: None)
  Receive Date: 20120227
  Receipt Date: 20111230
  Transmission Date: 20120608
  Serious: No
  Sender: FDA-Public Use
  Company Number: 342310

PATIENT
  Age: 67 Year
  Sex: Male

DRUGS (3)
  1. GLIPIZIDE [Concomitant]
  2. VICTOZA [Suspect]
     Indication: TYPE 2 DIABETES MELLITUS
     Dosage: 1.2 MG, QD IN THE MORNING, SUBCUTANEOUS
     Route: 058
  3. METFORMIN HCL [Concomitant]

REACTIONS (4)
  - ABDOMINAL DISTENSION [None]
  - FLATULENCE [None]
  - NAUSEA [None]
  - BLOOD GLUCOSE INCREASED [None]
